FAERS Safety Report 14618340 (Version 1)
Quarter: 2018Q1

REPORT INFORMATION
  Report Type: Spontaneous
  Country: US (occurrence: US)
  Receive Date: 20180309
  Receipt Date: 20180309
  Transmission Date: 20180509
  Serious: No
  Sender: FDA-Public Use
  Company Number: US-BAYER-2018-038797

PATIENT
  Age: 9 Year
  Sex: Male
  Weight: 36 kg

DRUGS (1)
  1. CLARITIN [Suspect]
     Active Substance: LORATADINE
     Dosage: 1 DF, QD
     Route: 048
     Dates: start: 20180224

REACTIONS (3)
  - Headache [Not Recovered/Not Resolved]
  - Product lot number issue [None]
  - Product use complaint [None]

NARRATIVE: CASE EVENT DATE: 20180224
